FAERS Safety Report 4927587-4 (Version None)
Quarter: 2006Q1

REPORT INFORMATION
  Report Type: 
  Country: None (occurrence: None)
  Receive Date: 20060228
  Receipt Date: 20060222
  Transmission Date: 20060701
  Serious: Yes (Hospitalization)
  Sender: FDA-Public Use
  Company Number: US-ROCHE-437474

PATIENT
  Age: 59 Year
  Sex: Female
  Weight: 56.7 kg

DRUGS (2)
  1. CAPECITABINE [Suspect]
     Indication: BREAST CANCER METASTATIC
     Dosage: ON DAYS ONE TO FOURTEEN.
     Route: 065
     Dates: start: 20060111
  2. BLINDED BEVACIZUMAB [Suspect]
     Indication: BREAST CANCER METASTATIC
     Route: 042
     Dates: start: 20060111

REACTIONS (1)
  - PANCREATITIS [None]
